FAERS Safety Report 16775395 (Version 4)
Quarter: 2020Q2

REPORT INFORMATION
  Report Type: Report from Study
  Country: CO (occurrence: CO)
  Receive Date: 20190905
  Receipt Date: 20200512
  Transmission Date: 20200713
  Serious: Yes (Hospitalization, Other)
  Sender: FDA-Public Use
  Company Number: PHHY2019CO204393

PATIENT
  Sex: Male
  Weight: 68 kg

DRUGS (2)
  1. AFINITOR [Suspect]
     Active Substance: EVEROLIMUS
     Indication: GASTROENTEROPANCREATIC NEUROENDOCRINE TUMOUR DISEASE
     Dosage: 10 MG, QD
     Route: 048
  2. AMLODIPINE [Suspect]
     Active Substance: AMLODIPINE BESYLATE
     Indication: PRODUCT USED FOR UNKNOWN INDICATION
     Route: 065

REACTIONS (16)
  - Headache [Unknown]
  - Effusion [Unknown]
  - Neoplasm malignant [Unknown]
  - Thrombosis [Unknown]
  - Drug ineffective [Unknown]
  - Fluid retention [Unknown]
  - Decreased appetite [Unknown]
  - Eye pain [Unknown]
  - Blindness [Unknown]
  - Procedural pain [Unknown]
  - Peripheral swelling [Unknown]
  - Malignant neoplasm progression [Unknown]
  - Gastroenteropancreatic neuroendocrine tumour disease [Unknown]
  - Haemoglobin decreased [Unknown]
  - Fatigue [Unknown]
  - Post procedural discharge [Unknown]
